FAERS Safety Report 25675414 (Version 1)
Quarter: 2025Q3

REPORT INFORMATION
  Report Type: Spontaneous
  Country: IQ (occurrence: IQ)
  Receive Date: 20250813
  Receipt Date: 20250813
  Transmission Date: 20251021
  Serious: Yes (Hospitalization, Other)
  Sender: BIOVITRUM
  Company Number: IQ-BIOVITRUM-2025-IQ-011013

PATIENT
  Sex: Female

DRUGS (1)
  1. AVATROMBOPAG [Suspect]
     Active Substance: AVATROMBOPAG
     Indication: Product used for unknown indication

REACTIONS (1)
  - Pulmonary embolism [Recovered/Resolved]
